FAERS Safety Report 7398752-4 (Version None)
Quarter: 2011Q2

REPORT INFORMATION
  Report Type: 
  Country: None (occurrence: None)
  Receive Date: 20110401
  Receipt Date: 20110401
  Transmission Date: 20111010
  Serious: Yes (Other)
  Sender: FDA-Public Use
  Company Number: None

PATIENT
  Sex: Female
  Weight: 23 kg

DRUGS (6)
  1. TYVASO [Suspect]
     Indication: PULMONARY ARTERIAL HYPERTENSION
     Dosage: 36 MCG QID INHAL
     Route: 055
     Dates: start: 20100331, end: 20100528
  2. SILDENAFIL CITRATE [Suspect]
  3. SALINE NASAL GEL [Concomitant]
  4. MULTI-VITAMIN [Concomitant]
  5. AMLODIPINE [Concomitant]
  6. XOPENEX [Suspect]

REACTIONS (2)
  - BRONCHOSPASM [None]
  - RIGHT VENTRICULAR SYSTOLIC PRESSURE INCREASED [None]
